FAERS Safety Report 18589629 (Version 1)
Quarter: 2020Q4

REPORT INFORMATION
  Report Type: Spontaneous
  Country: US (occurrence: US)
  Receive Date: 20201207
  Receipt Date: 20201207
  Transmission Date: 20210114
  Serious: Yes (Hospitalization)
  Sender: FDA-Public Use
  Company Number: None

PATIENT
  Age: 66 Year
  Sex: Female

DRUGS (14)
  1. ATENOLOL. [Concomitant]
     Active Substance: ATENOLOL
  2. KLOR-CON [Concomitant]
     Active Substance: POTASSIUM CHLORIDE
  3. VELETRI [Concomitant]
     Active Substance: EPOPROSTENOL
  4. OXYGEN SUPPLEMENTAL [Concomitant]
     Active Substance: OXYGEN
  5. AZATHIOPRINE. [Concomitant]
     Active Substance: AZATHIOPRINE
  6. FLONASE [Concomitant]
     Active Substance: FLUTICASONE PROPIONATE
  7. ETHACRYNIC ACID. [Concomitant]
     Active Substance: ETHACRYNIC ACID
  8. DIGOXIN. [Concomitant]
     Active Substance: DIGOXIN
  9. NORTRIPTYLINE [Concomitant]
     Active Substance: NORTRIPTYLINE
  10. BIT B COMPLEX [Concomitant]
  11. AMBRISENTAN 10MG TABLETS 30/BO: 10MG [Suspect]
     Active Substance: AMBRISENTAN
     Indication: PULMONARY HYPERTENSION
     Route: 048
     Dates: start: 201112
  12. SILDENAFIL. [Concomitant]
     Active Substance: SILDENAFIL
  13. TRAMADOL. [Concomitant]
     Active Substance: TRAMADOL
  14. FISH OIL [Concomitant]
     Active Substance: FISH OIL

REACTIONS (5)
  - Fluid overload [None]
  - Right ventricular failure [None]
  - Pyrexia [None]
  - Acute respiratory failure [None]
  - Respiratory failure [None]

NARRATIVE: CASE EVENT DATE: 20201111
